FAERS Safety Report 11202571 (Version 1)
Quarter: 2015Q2

REPORT INFORMATION
  Report Type: Spontaneous
  Country: BR (occurrence: BR)
  Receive Date: 20150619
  Receipt Date: 20150619
  Transmission Date: 20150821
  Serious: Yes (Hospitalization, Other)
  Sender: FDA-Public Use
  Company Number: BR-ASTRAZENECA-2015SE60236

PATIENT
  Age: 55 Year
  Sex: Male
  Weight: 85 kg

DRUGS (14)
  1. ATENOLOL. [Suspect]
     Active Substance: ATENOLOL
     Indication: HEART RATE IRREGULAR
     Route: 048
     Dates: start: 2006
  2. ESOMEPRAZOLE [Suspect]
     Active Substance: ESOMEPRAZOLE
     Indication: GASTRITIS
     Route: 048
     Dates: start: 2007
  3. ASA INFANTIL [Suspect]
     Active Substance: ASPIRIN
     Indication: ANTICOAGULANT THERAPY
     Route: 048
     Dates: start: 2006
  4. SIMVASTATIN. [Concomitant]
     Active Substance: SIMVASTATIN
     Indication: BLOOD TRIGLYCERIDES ABNORMAL
     Dosage: 200 MG FENOFIBRATE + 20 MG DE SIMVASTATIN +10 MG EXEMETIBE
     Dates: start: 2007
  5. GLIFAGE [Suspect]
     Active Substance: METFORMIN HYDROCHLORIDE
     Indication: DIABETES MELLITUS
     Dosage: NON-AZ PRODUCT 500MG UNKNOWN
     Route: 048
     Dates: start: 2007
  6. FENOFIBRATE. [Concomitant]
     Active Substance: FENOFIBRATE
     Indication: BLOOD TRIGLYCERIDES ABNORMAL
     Dosage: 200 MG FENOFIBRATE + 20 MG DE SIMVASTATIN +10 MG EXEMETIBE
     Route: 048
     Dates: start: 2007
  7. LEVOTHYROXINE [Concomitant]
     Active Substance: LEVOTHYROXINE
     Indication: THYROID DISORDER
     Route: 048
  8. SIMVASTATIN. [Concomitant]
     Active Substance: SIMVASTATIN
     Indication: BLOOD CHOLESTEROL ABNORMAL
     Dosage: 200 MG FENOFIBRATE + 20 MG DE SIMVASTATIN +10 MG EXEMETIBE
     Dates: start: 2007
  9. EXEMESTANE. [Concomitant]
     Active Substance: EXEMESTANE
     Indication: BLOOD TRIGLYCERIDES ABNORMAL
     Dosage: 200 MG FENOFIBRATE + 20 MG DE SIMVASTATIN +10 MG EXEMETIBE
     Dates: start: 2007
  10. FENOFIBRATE. [Concomitant]
     Active Substance: FENOFIBRATE
     Indication: BLOOD CHOLESTEROL ABNORMAL
     Dosage: 200 MG FENOFIBRATE + 20 MG DE SIMVASTATIN +10 MG EXEMETIBE
     Route: 048
     Dates: start: 2007
  11. PLAVIX [Concomitant]
     Active Substance: CLOPIDOGREL BISULFATE
     Indication: ANGIOPLASTY
     Route: 048
     Dates: start: 2006
  12. GLIMEPERIDE [Concomitant]
     Active Substance: GLIMEPIRIDE
     Indication: DIABETES MELLITUS
     Route: 048
     Dates: start: 2007
  13. BRILINTA [Suspect]
     Active Substance: TICAGRELOR
     Indication: ANGIOPLASTY
     Route: 048
     Dates: start: 20150612, end: 201506
  14. EXEMESTANE. [Concomitant]
     Active Substance: EXEMESTANE
     Indication: BLOOD CHOLESTEROL ABNORMAL
     Dosage: 200 MG FENOFIBRATE + 20 MG DE SIMVASTATIN +10 MG EXEMETIBE
     Dates: start: 2007

REACTIONS (10)
  - Dyspnoea [Recovered/Resolved]
  - Diabetes mellitus [Recovered/Resolved]
  - Gastritis [Recovered/Resolved]
  - Blood cholesterol increased [Recovered/Resolved]
  - Coronary artery restenosis [None]
  - Blood triglycerides increased [Recovered/Resolved]
  - Fatigue [None]
  - Coronary artery restenosis [Recovered/Resolved]
  - Heart rate irregular [Recovered/Resolved]
  - Headache [Recovered/Resolved]

NARRATIVE: CASE EVENT DATE: 2006
